FAERS Safety Report 25604750 (Version 3)
Quarter: 2025Q3

REPORT INFORMATION
  Report Type: Spontaneous
  Country: IN (occurrence: IN)
  Receive Date: 20250725
  Receipt Date: 20250812
  Transmission Date: 20251021
  Serious: Yes (Hospitalization)
  Sender: DR REDDYS
  Company Number: IN-RDY-IND/2025/07/009986

PATIENT
  Age: 50 Year
  Sex: Male

DRUGS (2)
  1. RABEPRAZOLE SODIUM [Suspect]
     Active Substance: RABEPRAZOLE SODIUM
     Indication: Product used for unknown indication
     Route: 065
  2. RABEPRAZOLE SODIUM [Suspect]
     Active Substance: RABEPRAZOLE SODIUM
     Route: 065

REACTIONS (5)
  - Diarrhoea [Unknown]
  - Vomiting [Unknown]
  - Product colour issue [Unknown]
  - Product prescribing error [Unknown]
  - Wrong technique in product usage process [Unknown]
